FAERS Safety Report 7246368 (Version 3)
Quarter: 2020Q3

REPORT INFORMATION
  Report Type: Report from Study
  Country: BE (occurrence: BE)
  Receive Date: 20100114
  Receipt Date: 20100202
  Transmission Date: 20201104
  Serious: Yes (Hospitalization)
  Sender: FDA-Public Use
  Company Number: BE-WYE-H12868810

PATIENT
  Age: 58 Year
  Sex: Female
  Weight: 54.1 kg

DRUGS (6)
  1. METHYLPREDNISOLONE. [Concomitant]
     Active Substance: METHYLPREDNISOLONE
     Indication: TUMOUR PAIN
     Route: 048
     Dates: start: 20091216, end: 20100106
  2. FELDENE [Suspect]
     Active Substance: PIROXICAM
     Indication: PAIN
     Route: 048
     Dates: start: 20091216, end: 20100106
  3. BUPRENORPHINE. [Concomitant]
     Active Substance: BUPRENORPHINE
     Indication: PAIN
     Dosage: NOT PROVIDED
     Route: 061
     Dates: start: 20091118
  4. NERATINIB [Suspect]
     Active Substance: NERATINIB
     Indication: BREAST CANCER
     Route: 048
     Dates: start: 20081119, end: 20100105
  5. LYRICA [Concomitant]
     Active Substance: PREGABALIN
     Indication: PAIN
     Route: 048
     Dates: start: 20091216
  6. VINORELBINE [Suspect]
     Active Substance: VINORELBINE TARTRATE
     Indication: BREAST CANCER
     Dosage: 25 MG/M^2 DAYS 1 AND 8
     Route: 042
     Dates: start: 20081118, end: 20091220

REACTIONS (1)
  - Renal failure [Recovered/Resolved]

NARRATIVE: CASE EVENT DATE: 20100106
